FAERS Safety Report 12464011 (Version 1)
Quarter: 2016Q2

REPORT INFORMATION
  Report Type: Spontaneous
  Country: US (occurrence: US)
  Receive Date: 20160614
  Receipt Date: 20160614
  Transmission Date: 20160815
  Serious: Yes (Hospitalization, Other)
  Sender: FDA-Public Use
  Company Number: US-MDT-ADR-2016-01073

PATIENT
  Age: 58 Year
  Sex: Female

DRUGS (3)
  1. LIORESAL [Suspect]
     Active Substance: BACLOFEN
     Dosage: 676 MCG/DAY (50% DECREASE)
     Route: 037
     Dates: start: 20160608, end: 20160608
  2. LIORESAL [Suspect]
     Active Substance: BACLOFEN
     Dosage: 1352 MCG/DAY
     Route: 037
     Dates: start: 20160607, end: 20160608
  3. LIORESAL [Suspect]
     Active Substance: BACLOFEN
     Dosage: 338 MCG/DAY (50% DECREASE)
     Route: 037
     Dates: start: 20160608

REACTIONS (3)
  - Depressed level of consciousness [Not Recovered/Not Resolved]
  - Incorrect route of drug administration [Not Recovered/Not Resolved]
  - Somnolence [Not Recovered/Not Resolved]

NARRATIVE: CASE EVENT DATE: 20160608
